FAERS Safety Report 17467889 (Version 1)
Quarter: 2020Q1

REPORT INFORMATION
  Report Type: Report from Study
  Country: US (occurrence: US)
  Receive Date: 20200227
  Receipt Date: 20200227
  Transmission Date: 20200409
  Serious: Yes (Death)
  Sender: FDA-Public Use
  Company Number: US-PFIZER INC-2020073827

PATIENT

DRUGS (1)
  1. FLUDARABINE PHOSPHATE. [Suspect]
     Active Substance: FLUDARABINE PHOSPHATE
     Indication: NON-SMALL CELL LUNG CANCER
     Dosage: 22 MG/M2, DAILY

REACTIONS (3)
  - Dementia [Fatal]
  - Depressed level of consciousness [Fatal]
  - Coma [Fatal]
